FAERS Safety Report 4727094-8 (Version None)
Quarter: 2005Q3

REPORT INFORMATION
  Report Type: 
  Country: None (occurrence: None)
  Receive Date: 20050728
  Receipt Date: 20050720
  Transmission Date: 20060218
  Serious: Yes (Life-Threatening, Hospitalization)
  Sender: FDA-Public Use
  Company Number: JP-JNJFOC-20050704141

PATIENT
  Sex: Female

DRUGS (7)
  1. RISPERDAL [Suspect]
     Route: 048
     Dates: start: 20040930, end: 20041004
  2. RISPERDAL [Suspect]
     Indication: SCHIZOPHRENIA
     Route: 048
     Dates: start: 20040930, end: 20041004
  3. BIPERIDEN HYDROCHLORIDE [Concomitant]
  4. ESTAZOLAM [Concomitant]
  5. FLUNITRAZEPAM [Concomitant]
  6. LITHIUM CARBONATE [Concomitant]
  7. LITHIUM CARBONATE [Concomitant]

REACTIONS (2)
  - PULMONARY EMBOLISM [None]
  - RHABDOMYOLYSIS [None]
